FAERS Safety Report 6905502-1 (Version None)
Quarter: 2010Q3

REPORT INFORMATION
  Report Type: 
  Country: None (occurrence: None)
  Receive Date: 20100804
  Receipt Date: 20100726
  Transmission Date: 20110219
  Serious: Yes (Hospitalization, Other)
  Sender: FDA-Public Use
  Company Number: GB-ASTRAZENECA-2010SE31156

PATIENT
  Age: 8693 Day
  Sex: Female

DRUGS (7)
  1. SEROQUEL [Suspect]
     Indication: BIPOLAR I DISORDER
     Route: 048
     Dates: start: 20091204, end: 20091209
  2. SEROQUEL [Suspect]
     Indication: AFFECTIVE DISORDER
     Route: 048
     Dates: start: 20091204, end: 20091209
  3. SEROQUEL [Suspect]
     Dosage: 50-100 MG
     Route: 048
  4. SEROQUEL [Suspect]
     Dosage: 50-100 MG
     Route: 048
  5. SERTRALINE HYDROCHLORIDE [Concomitant]
  6. MIRTAZAPINE [Concomitant]
     Indication: DEPRESSION
     Route: 048
  7. ASPIRIN [Concomitant]

REACTIONS (3)
  - FALL [None]
  - GRAND MAL CONVULSION [None]
  - SKULL FRACTURE [None]
